FAERS Safety Report 7500389-0 (Version None)
Quarter: 2011Q2

REPORT INFORMATION
  Report Type: 
  Country: None (occurrence: None)
  Receive Date: 20110524
  Receipt Date: 20110302
  Transmission Date: 20111010
  Serious: No
  Sender: FDA-Public Use
  Company Number: US-BRISTOL-MYERS SQUIBB COMPANY-15485568

PATIENT
  Sex: Male

DRUGS (2)
  1. METFORMIN HCL [Concomitant]
  2. SAXAGLIPTIN [Suspect]
     Dosage: TAKING 2 PILLS A DAY (TOTAL 10MG).

REACTIONS (1)
  - OVERDOSE [None]
